FAERS Safety Report 15665443 (Version 2)
Quarter: 2018Q4

REPORT INFORMATION
  Report Type: Report from Study
  Country: BR (occurrence: BR)
  Receive Date: 20181128
  Receipt Date: 20181219
  Transmission Date: 20190205
  Serious: Yes (Other)
  Sender: FDA-Public Use
  Company Number: BR-AMGEN-BRACT2018167201

PATIENT
  Age: 59 Year
  Sex: Female

DRUGS (7)
  1. INSULIN REGULAR [Concomitant]
     Active Substance: INSULIN NOS
     Dosage: UNK
  2. CILOSTAZOL. [Concomitant]
     Active Substance: CILOSTAZOL
     Dosage: UNK
     Dates: start: 201707, end: 20180807
  3. INSULIN REGULAR [Concomitant]
     Active Substance: INSULIN NOS
     Dosage: UNK
     Dates: start: 20180522
  4. DARBEPOETIN ALFA [Suspect]
     Active Substance: DARBEPOETIN ALFA
     Indication: ANAEMIA
     Dosage: 40 MUG, Q2WK
     Route: 058
     Dates: start: 20180709, end: 20180902
  5. NPH INSULIN [Concomitant]
     Active Substance: INSULIN BEEF
     Dosage: UNK
     Dates: start: 201710
  6. GABAPENTIN. [Concomitant]
     Active Substance: GABAPENTIN
     Dosage: UNK
     Dates: start: 20180616, end: 20180807
  7. DARBEPOETIN ALFA [Suspect]
     Active Substance: DARBEPOETIN ALFA
     Dosage: 40 MUG, Q2WK
     Route: 058
     Dates: start: 20181107

REACTIONS (1)
  - Alanine aminotransferase increased [Recovered/Resolved]

NARRATIVE: CASE EVENT DATE: 20180806
